FAERS Safety Report 9378825 (Version 2)
Quarter: 2013Q3

REPORT INFORMATION
  Report Type: Spontaneous
  Country: US (occurrence: None)
  Receive Date: 20130626
  Receipt Date: 20130709
  Transmission Date: 20140515
  Serious: Yes (Hospitalization)
  Sender: FDA-Public Use
  Company Number: CABO-13002854

PATIENT
  Age: 43 Year
  Sex: Female

DRUGS (8)
  1. COMETRIQ (CABOZANTINIB) CAPSULE [Suspect]
     Indication: THYROID CANCER
     Route: 048
     Dates: start: 20130402, end: 20130612
  2. FENTANYL (FENTANYL) [Concomitant]
  3. DILAUDID (HYDROMORPHONE HYDROCHLORIDE) [Concomitant]
  4. LEVOTHROID (LEVOTHYROXINE SODIUM) [Concomitant]
  5. ZOLOFT (SERTRALINE HYDROCHLORIDE) [Concomitant]
  6. MOTRIN (IBUPROFEN) [Concomitant]
  7. METHADONE (METHADONE) [Concomitant]
  8. PRILOSEC [Concomitant]

REACTIONS (5)
  - Bone pain [None]
  - Oral pain [None]
  - Ageusia [None]
  - Blood pressure increased [None]
  - Pain [None]
